FAERS Safety Report 6941360-7 (Version None)
Quarter: 2010Q3

REPORT INFORMATION
  Report Type: 
  Country: None (occurrence: None)
  Receive Date: 20100825
  Receipt Date: 20100811
  Transmission Date: 20110219
  Serious: Yes (Other)
  Sender: FDA-Public Use
  Company Number: PHHY2010TW52738

PATIENT
  Age: 58 Year
  Sex: Female

DRUGS (1)
  1. ZOLEDRONIC [Suspect]
     Indication: OSTEOPOROSIS
     Dosage: 5 MG/100 ML ONCE PER YEAR
     Route: 042
     Dates: start: 20100719

REACTIONS (4)
  - ANGINA PECTORIS [None]
  - BONE PAIN [None]
  - FATIGUE [None]
  - MUSCULOSKELETAL CHEST PAIN [None]
